FAERS Safety Report 6504272-9 (Version None)
Quarter: 2009Q4

REPORT INFORMATION
  Report Type: 
  Country: None (occurrence: None)
  Receive Date: 20091217
  Receipt Date: 20091208
  Transmission Date: 20100525
  Serious: Yes (Death, Hospitalization)
  Sender: FDA-Public Use
  Company Number: JP-PFIZER INC-2009213529

PATIENT
  Age: 62 Year
  Sex: Male
  Weight: 60.5 kg

DRUGS (10)
  1. SILDENAFIL CITRATE [Suspect]
     Indication: INTERSTITIAL LUNG DISEASE
     Dosage: 20 MG, 3X/DAY
     Route: 048
     Dates: start: 20081205
  2. PIRFENIDONE [Suspect]
     Indication: IDIOPATHIC PULMONARY FIBROSIS
     Dosage: UNK
     Route: 048
     Dates: start: 20090101
  3. NEORAL [Concomitant]
     Route: 048
  4. PREDONINE [Concomitant]
     Route: 048
  5. ALENDRONATE SODIUM [Concomitant]
     Route: 048
  6. BACTRAMIN [Concomitant]
     Route: 048
  7. GASTROM [Concomitant]
     Route: 048
  8. RESPLEN [Concomitant]
     Route: 048
  9. ADALAT [Concomitant]
     Route: 048
  10. HUMALOG [Concomitant]
     Route: 058

REACTIONS (3)
  - DECREASED APPETITE [None]
  - INTERSTITIAL LUNG DISEASE [None]
  - MALAISE [None]
